FAERS Safety Report 4533902-6 (Version None)
Quarter: 2004Q4

REPORT INFORMATION
  Report Type: 
  Country: None (occurrence: None)
  Receive Date: 20041214
  Receipt Date: 20040824
  Transmission Date: 20050328
  Serious: No
  Sender: FDA-Public Use
  Company Number: US_0408104973

PATIENT
  Age: 70 Year
  Sex: Male
  Weight: 82 kg

DRUGS (4)
  1. CIALIS [Suspect]
     Indication: ERECTILE DYSFUNCTION
     Dosage: 20 MG AS NEEDED
     Dates: start: 20040701
  2. ACCUPRIL [Concomitant]
  3. NORVASC [Concomitant]
  4. TENORMIN (ATENOLOL EG) [Concomitant]

REACTIONS (3)
  - BLOOD PRESSURE DECREASED [None]
  - DRUG INEFFECTIVE [None]
  - THERAPEUTIC RESPONSE DECREASED [None]
